FAERS Safety Report 20439303 (Version 1)
Quarter: 2022Q1

REPORT INFORMATION
  Report Type: Other
  Country: US (occurrence: None)
  Receive Date: 20220207
  Receipt Date: 20220207
  Transmission Date: 20220424
  Serious: Yes (Other)
  Sender: FDA-Public Use
  Company Number: US-ROCHE-2985426

PATIENT
  Sex: Female

DRUGS (1)
  1. ALECENSA [Suspect]
     Active Substance: ALECTINIB HYDROCHLORIDE
     Indication: Bronchial carcinoma
     Dosage: TAKE 4 CAPSULE(S) BY MOUTH TWICE A DAY WITH FOOD
     Route: 048

REACTIONS (10)
  - Dyspnoea [Unknown]
  - Unevaluable event [Unknown]
  - Tremor [Unknown]
  - Eye disorder [Unknown]
  - Defaecation disorder [Unknown]
  - Urine output decreased [Unknown]
  - Abdominal pain upper [Unknown]
  - Facial paralysis [Unknown]
  - Myalgia [Unknown]
  - Pain in extremity [Unknown]
